FAERS Safety Report 20092274 (Version 1)
Quarter: 2021Q4

REPORT INFORMATION
  Report Type: Spontaneous
  Country: US (occurrence: US)
  Receive Date: 20211119
  Receipt Date: 20211119
  Transmission Date: 20220303
  Serious: No
  Sender: FDA-Public Use
  Company Number: US-NOVOPROD-826741

PATIENT
  Sex: Female

DRUGS (1)
  1. NOVOLOG MIX 50/50 [Suspect]
     Active Substance: INSULIN ASPART
     Indication: Product used for unknown indication
     Dosage: UNK
     Route: 058

REACTIONS (3)
  - Fatigue [Not Recovered/Not Resolved]
  - Fatigue [Unknown]
  - Confusional state [Unknown]
